FAERS Safety Report 7434095-8 (Version None)
Quarter: 2011Q2

REPORT INFORMATION
  Report Type: 
  Country: None (occurrence: None)
  Receive Date: 20110425
  Receipt Date: 20110222
  Transmission Date: 20111010
  Serious: No
  Sender: FDA-Public Use
  Company Number: US-MYLANLABS-2011S1002138

PATIENT
  Sex: Female

DRUGS (2)
  1. LORAZEPAM [Suspect]
     Indication: ANXIETY
     Dosage: PT TAKES (0.5) OF 1MG TABLET HS
     Route: 048
  2. XALATAN [Concomitant]

REACTIONS (4)
  - HEAD DISCOMFORT [None]
  - HEADACHE [None]
  - VISUAL IMPAIRMENT [None]
  - MUSCULOSKELETAL STIFFNESS [None]
